FAERS Safety Report 7080509-5 (Version None)
Quarter: 2010Q4

REPORT INFORMATION
  Report Type: 
  Country: None (occurrence: None)
  Receive Date: 20101025
  Receipt Date: 20101008
  Transmission Date: 20110411
  Serious: Yes (Other)
  Sender: FDA-Public Use
  Company Number: ACO_01880_2010

PATIENT
  Sex: Female
  Weight: 68.0396 kg

DRUGS (3)
  1. AMPYRA [Suspect]
     Indication: GAIT DISTURBANCE
     Dosage: (10 MG BID ORAL)
     Route: 048
     Dates: start: 20100716
  2. OXYCONTIN [Suspect]
     Indication: PROCEDURAL PAIN
     Dosage: (DF)
     Dates: start: 20100901
  3. AVONEX [Concomitant]

REACTIONS (5)
  - BUNION [None]
  - DRUG INTERACTION [None]
  - DYSGEUSIA [None]
  - FEELING ABNORMAL [None]
  - TENDON RUPTURE [None]
